FAERS Safety Report 16179856 (Version 1)
Quarter: 2019Q2

REPORT INFORMATION
  Report Type: Spontaneous
  Country: CN (occurrence: CN)
  Receive Date: 20190410
  Receipt Date: 20190410
  Transmission Date: 20190711
  Serious: Yes (Other)
  Sender: FDA-Public Use
  Company Number: CN-PFIZER INC-2019144848

PATIENT
  Age: 90 Year
  Sex: Male
  Weight: 65 kg

DRUGS (6)
  1. NORVASC [Concomitant]
     Active Substance: AMLODIPINE BESYLATE
     Indication: HYPERTENSION
     Dosage: 5 MG, 1X/DAY
     Route: 048
     Dates: start: 20180301, end: 20190331
  2. GABAPENTIN. [Concomitant]
     Active Substance: GABAPENTIN
     Dosage: 0.1 G, 3X/DAY
     Dates: start: 20190321
  3. RABEPRAZOLE SODIUM. [Concomitant]
     Active Substance: RABEPRAZOLE SODIUM
     Dosage: 20 MG, 1X/DAY
     Dates: start: 20190321
  4. MIAO NA [Suspect]
     Active Substance: EPERISONE HYDROCHLORIDE
     Indication: MUSCLE RELAXANT THERAPY
     Dosage: 1 DF, 3X/DAY
     Route: 048
     Dates: start: 20190315, end: 20190322
  5. TIZANIDINE HCL [Concomitant]
     Active Substance: TIZANIDINE HYDROCHLORIDE
     Dosage: 2 MG, 3X/DAY
     Dates: start: 20190321
  6. CELEBREX [Suspect]
     Active Substance: CELECOXIB
     Indication: HEADACHE
     Dosage: 0.2 G, 1X/DAY
     Route: 048
     Dates: start: 20190315, end: 20190322

REACTIONS (5)
  - Red blood cell count decreased [Unknown]
  - Drug ineffective for unapproved indication [Unknown]
  - Haemoglobin decreased [Unknown]
  - Faeces discoloured [Recovered/Resolved]
  - Gastrointestinal haemorrhage [Recovered/Resolved]

NARRATIVE: CASE EVENT DATE: 20190315
